FAERS Safety Report 10223563 (Version 2)
Quarter: 2015Q1

REPORT INFORMATION
  Report Type: Spontaneous
  Country: US (occurrence: US)
  Receive Date: 20140609
  Receipt Date: 20150312
  Transmission Date: 20150720
  Serious: Yes (Other)
  Sender: FDA-Public Use
  Company Number: US-ORION CORPORATION ORION PHARMA-ENT 2014-0086

PATIENT
  Age: 64 Year
  Sex: Male

DRUGS (1)
  1. ENTACAPONE. [Suspect]
     Active Substance: ENTACAPONE
     Indication: PARKINSON^S DISEASE
     Dosage: STRENGTH: 200 MG
     Route: 065

REACTIONS (4)
  - Psychotic disorder [Recovered/Resolved]
  - Diet refusal [Unknown]
  - Refusal of treatment by patient [Unknown]
  - Fall [Unknown]
